FAERS Safety Report 9238887 (Version 1)
Quarter: 2013Q1

REPORT INFORMATION
  Report Type: Spontaneous
  Country: US (occurrence: None)
  Receive Date: 20121102
  Receipt Date: 20121102
  Transmission Date: 20140127
  Serious: Yes (Hospitalization)
  Sender: FDA-Public Use
  Company Number: 137757

PATIENT
  Age: 65 Year
  Sex: Male
  Weight: 84 kg

DRUGS (1)
  1. LEUCOVORIN CALCIUM FOR INJ. 50MG - BEDFORD LABS, INC. [Suspect]
     Indication: COLORECTAL CANCER METASTATIC
     Dates: start: 20120619

REACTIONS (9)
  - Abdominal pain upper [None]
  - Fatigue [None]
  - Diarrhoea [None]
  - Dysuria [None]
  - Platelet count decreased [None]
  - Haemoglobin decreased [None]
  - Varices oesophageal [None]
  - Portal hypertension [None]
  - Hepatic cirrhosis [None]
